FAERS Safety Report 5878484-1 (Version None)
Quarter: 2008Q3

REPORT INFORMATION
  Report Type: 
  Country: None (occurrence: None)
  Receive Date: 20080911
  Receipt Date: 20080714
  Transmission Date: 20090109
  Serious: No
  Sender: FDA-Public Use
  Company Number: US-AMGEN-KDL294316

PATIENT
  Sex: Female

DRUGS (5)
  1. NEUPOGEN [Suspect]
     Indication: CHEMOTHERAPY
     Dates: start: 20080626, end: 20080626
  2. NEULASTA [Suspect]
     Indication: CHEMOTHERAPY
     Dates: start: 20080620
  3. CYTOXAN [Concomitant]
  4. ADRIAMYCIN PFS [Concomitant]
  5. CIPRO [Concomitant]

REACTIONS (4)
  - BLOOD TEST ABNORMAL [None]
  - EYE DISORDER [None]
  - FATIGUE [None]
  - THERAPEUTIC RESPONSE DELAYED [None]
